FAERS Safety Report 6191388-2 (Version None)
Quarter: 2009Q2

REPORT INFORMATION
  Report Type: 
  Country: None (occurrence: None)
  Receive Date: 20090515
  Receipt Date: 20090504
  Transmission Date: 20091009
  Serious: Yes (Hospitalization, Other)
  Sender: FDA-Public Use
  Company Number: US-AVENTIS-200911766US

PATIENT
  Sex: Female
  Weight: 93.18 kg

DRUGS (11)
  1. LOVENOX [Suspect]
     Indication: THROMBOSIS PROPHYLAXIS
     Route: 058
     Dates: start: 20081104, end: 20081105
  2. LOVENOX [Suspect]
     Route: 058
     Dates: start: 20081108, end: 20081111
  3. LOVENOX [Suspect]
     Route: 058
     Dates: start: 20081114, end: 20081117
  4. LOVENOX [Suspect]
     Indication: DEEP VEIN THROMBOSIS
     Route: 058
     Dates: start: 20081104, end: 20081105
  5. LOVENOX [Suspect]
     Route: 058
     Dates: start: 20081108, end: 20081111
  6. LOVENOX [Suspect]
     Route: 058
     Dates: start: 20081114, end: 20081117
  7. COUMADIN [Suspect]
     Dosage: DOSE: UNK
     Dates: end: 20081101
  8. AVAPRO [Concomitant]
     Indication: HYPERTENSION
  9. HYDROCHLOROTHIAZIDE [Concomitant]
     Indication: HYPERTENSION
  10. PREVACID [Concomitant]
     Indication: GASTROOESOPHAGEAL REFLUX DISEASE
  11. CALCIUM + VITAMIN D [Concomitant]
     Indication: OSTEOPENIA

REACTIONS (13)
  - BLISTER [None]
  - DEEP VEIN THROMBOSIS [None]
  - DRUG INEFFECTIVE [None]
  - ERYTHEMA [None]
  - HAEMATOMA [None]
  - LEUKOCYTOSIS [None]
  - PAIN [None]
  - PARALYSIS [None]
  - PITTING OEDEMA [None]
  - PYREXIA [None]
  - RASH [None]
  - SKIN NECROSIS [None]
  - SKIN ULCER [None]
